FAERS Safety Report 6681219-6 (Version None)
Quarter: 2010Q2

REPORT INFORMATION
  Report Type: 
  Country: None (occurrence: None)
  Receive Date: 20100414
  Receipt Date: 20090424
  Transmission Date: 20101027
  Serious: No
  Sender: FDA-Public Use
  Company Number: US-KINGPHARMUSA00001-K200900495

PATIENT
  Sex: Male

DRUGS (3)
  1. SKELAXIN [Suspect]
     Indication: MUSCLE SPASMS
     Dosage: 800 MG, QD
     Route: 048
     Dates: start: 20090422
  2. PLAVIX [Concomitant]
     Dosage: UNK
     Route: 048
  3. AVAPRO [Concomitant]
     Dosage: UNK

REACTIONS (1)
  - DIZZINESS [None]
